FAERS Safety Report 9255072 (Version 3)
Quarter: 2013Q4

REPORT INFORMATION
  Report Type: Spontaneous
  Country: US (occurrence: US)
  Receive Date: 20130425
  Receipt Date: 20131004
  Transmission Date: 20140711
  Serious: Yes (Hospitalization, Other)
  Sender: FDA-Public Use
  Company Number: US-ASTRAZENECA-2013SE27727

PATIENT
  Age: 53 Year
  Sex: Female
  Weight: 79.4 kg

DRUGS (19)
  1. NEXIUM [Suspect]
     Indication: GASTROOESOPHAGEAL REFLUX DISEASE
     Route: 048
     Dates: start: 20011106
  2. NEXIUM [Suspect]
     Indication: GASTROOESOPHAGEAL REFLUX DISEASE
     Route: 048
     Dates: start: 200510
  3. NEXIUM [Suspect]
     Indication: GASTROOESOPHAGEAL REFLUX DISEASE
     Route: 048
     Dates: start: 2006
  4. NEXIUM [Suspect]
     Indication: GASTROOESOPHAGEAL REFLUX DISEASE
     Route: 048
     Dates: start: 201011
  5. NEXIUM [Suspect]
     Indication: GASTROOESOPHAGEAL REFLUX DISEASE
     Route: 048
     Dates: start: 20101110
  6. CARAFATE [Concomitant]
     Dates: start: 20110407
  7. ROLAIDS [Concomitant]
     Indication: DYSPEPSIA
  8. COUMADIN [Concomitant]
  9. MORPHINE [Concomitant]
  10. ZANAFLEX [Concomitant]
  11. PROMETHAZINE HCL [Concomitant]
  12. HYDROCODONE [Concomitant]
  13. NEURONTIN [Concomitant]
     Dates: start: 20050404
  14. SYNTHROID [Concomitant]
     Dates: start: 20050404
  15. TALACEN [Concomitant]
     Dates: start: 20050404
  16. TOPROL [Concomitant]
     Dates: start: 20050404
  17. CLONAZEPAM [Concomitant]
     Dates: start: 20050404
  18. TIZANIDINE [Concomitant]
     Route: 048
     Dates: start: 20120410
  19. OXYCODONE [Concomitant]
     Route: 048
     Dates: start: 20120410

REACTIONS (32)
  - Intestinal obstruction [Unknown]
  - Chest pain [Unknown]
  - Ankle fracture [Unknown]
  - Lower limb fracture [Unknown]
  - Back pain [Unknown]
  - Colon cancer [Unknown]
  - Cervical radiculopathy [Unknown]
  - Diabetic neuropathy [Unknown]
  - Transient ischaemic attack [Unknown]
  - Osteoporosis [Unknown]
  - Spinal fracture [Unknown]
  - Bone disorder [Unknown]
  - Multiple fractures [Unknown]
  - Tibia fracture [Unknown]
  - Hypokalaemia [Unknown]
  - Anxiety [Unknown]
  - Angina pectoris [Unknown]
  - Arthritis [Unknown]
  - Calcium deficiency [Unknown]
  - Chronic obstructive pulmonary disease [Unknown]
  - Cardiovascular disorder [Unknown]
  - Diabetes mellitus [Unknown]
  - Glaucoma [Unknown]
  - Vitamin D deficiency [Unknown]
  - Fibula fracture [Unknown]
  - Foot fracture [Unknown]
  - Osteoarthritis [Unknown]
  - Intervertebral disc degeneration [Unknown]
  - Diabetic vascular disorder [Unknown]
  - Intervertebral disc protrusion [Unknown]
  - Insomnia [Unknown]
  - Depression [Unknown]
